FAERS Safety Report 26073497 (Version 2)
Quarter: 2025Q4

REPORT INFORMATION
  Report Type: Spontaneous
  Country: EU (occurrence: EU)
  Receive Date: 20251121
  Receipt Date: 20251201
  Transmission Date: 20260118
  Serious: Yes (Other)
  Sender: DR REDDYS
  Company Number: None

PATIENT
  Age: 29 Year
  Sex: Female
  Weight: 70.3 kg

DRUGS (20)
  1. IBUPROFEN [Suspect]
     Active Substance: IBUPROFEN
     Indication: Product used for unknown indication
     Dosage: IF NECESSARY?1 PIECE PER DOSE IF NEEDED
     Route: 048
  2. IBUPROFEN [Suspect]
     Active Substance: IBUPROFEN
     Indication: Pain
  3. CLOZAPINE [Suspect]
     Active Substance: CLOZAPINE
     Indication: Product used for unknown indication
     Dosage: DAILY?2 TABLETS IN THE EVENING, FIRST ADMINISTRATION PLANNED FOR OCTOBER 13, 2025
     Route: 048
  4. CLOZAPINE [Suspect]
     Active Substance: CLOZAPINE
     Dosage: 0-0-1
     Route: 048
  5. SERTRALINE HYDROCHLORIDE [Suspect]
     Active Substance: SERTRALINE HYDROCHLORIDE
     Indication: Product used for unknown indication
     Dosage: DAILY?ONE TABLET IN THE MORNING. FIRST ADMINISTRATION PLANNED FOR SEPTEMBER 25, 2025.
     Route: 048
  6. POLYETHYLENE GLYCOL [Suspect]
     Active Substance: POLYETHYLENE GLYCOL
     Indication: Product used for unknown indication
     Dosage: DAILY
     Route: 050
  7. POLYETHYLENE GLYCOL [Suspect]
     Active Substance: POLYETHYLENE GLYCOL
     Dosage: ONE SACHET EACH MORNING/NOON/EVENING, FIRST ADMINISTRATION PLANNED FOR 22.09.2025, 18:00.
     Route: 048
  8. LACTULOSE [Suspect]
     Active Substance: LACTULOSE
     Indication: Product used for unknown indication
     Dosage: DAILY?REQUIRED MEDICATION
     Route: 048
  9. LACTULOSE [Suspect]
     Active Substance: LACTULOSE
     Indication: Constipation
     Dosage: FIRST ADMINISTRATION PLANNED FOR OCTOBER 28, 2025, 10-10-10 ML
     Route: 048
  10. AMISULPRIDE [Suspect]
     Active Substance: AMISULPRIDE
     Indication: Product used for unknown indication
     Dosage: DAILY?1.5-0-0 FIRST ADMINISTRATION PLANNED FOR 31.10.2025
  11. BIPERIDEN [Suspect]
     Active Substance: BIPERIDEN
     Indication: Product used for unknown indication
     Dosage: DAILY?1-0-0 FIRST ADMINISTRATION PLANNED FOR JUNE 24, 2025?1 PIECE PER DOSE IF NEEDED
     Route: 048
  12. BIPERIDEN [Suspect]
     Active Substance: BIPERIDEN
     Indication: Extrapyramidal disorder
     Dosage: IF NECESSARY
  13. DIAZEPAM [Suspect]
     Active Substance: DIAZEPAM
     Indication: Product used for unknown indication
     Dosage: IF NECESSARY?5MG PER DOSE IF NEEDED
     Route: 048
  14. DIAZEPAM [Suspect]
     Active Substance: DIAZEPAM
     Indication: Restlessness
  15. HALOPERIDOL [Suspect]
     Active Substance: HALOPERIDOL
     Indication: Product used for unknown indication
     Dosage: IF NECESSARY?REQUIRED MEDICATION
     Route: 048
  16. HALOPERIDOL [Suspect]
     Active Substance: HALOPERIDOL
     Indication: Restlessness
  17. LORAZEPAM [Suspect]
     Active Substance: LORAZEPAM
     Indication: Product used for unknown indication
     Dosage: IF NECESSARY?REQUIRED MEDICATION?1 PIECE PER DOSE IF NEEDED
     Route: 048
  18. LORAZEPAM [Suspect]
     Active Substance: LORAZEPAM
     Indication: Restlessness
  19. PROMETHAZINE [Suspect]
     Active Substance: PROMETHAZINE HYDROCHLORIDE
     Indication: Product used for unknown indication
     Dosage: IF NECESSARY
     Route: 048
  20. PROMETHAZINE [Suspect]
     Active Substance: PROMETHAZINE HYDROCHLORIDE
     Indication: Restlessness

REACTIONS (42)
  - Exophthalmos [Unknown]
  - Seizure [Unknown]
  - Syncope [Unknown]
  - Angina pectoris [Unknown]
  - Circulatory collapse [Unknown]
  - Epilepsy [Unknown]
  - Loss of consciousness [Unknown]
  - Fear of death [Unknown]
  - Foaming at mouth [Unknown]
  - Tremor [Unknown]
  - Human bite [Unknown]
  - Amnesia [Unknown]
  - Head discomfort [Unknown]
  - Screaming [Unknown]
  - Speech disorder [Unknown]
  - Confusional state [Unknown]
  - Anxiety [Unknown]
  - Headache [Unknown]
  - Dizziness [Unknown]
  - Nausea [Unknown]
  - Constipation [Unknown]
  - Abdominal discomfort [Unknown]
  - Pelvic pain [Unknown]
  - Pyrexia [Unknown]
  - Weight increased [Unknown]
  - Alopecia [Unknown]
  - Menstruation delayed [Unknown]
  - Uterine pain [Unknown]
  - Contraindicated product administered [Unknown]
  - Circumstance or information capable of leading to medication error [Unknown]
  - Labelled drug-drug interaction issue [Unknown]
  - Muscle twitching [Unknown]
  - Tremor [Unknown]
  - Motor dysfunction [Unknown]
  - Dysphemia [Unknown]
  - Memory impairment [Unknown]
  - Posture abnormal [Unknown]
  - Stress [Unknown]
  - Abdominal pain [Unknown]
  - Amenorrhoea [Unknown]
  - Tongue biting [Unknown]
  - Hyperacusis [Unknown]

NARRATIVE: CASE EVENT DATE: 20250101
